FAERS Safety Report 6532318-0 (Version None)
Quarter: 2010Q1

REPORT INFORMATION
  Report Type: 
  Country: None (occurrence: None)
  Receive Date: 20100108
  Receipt Date: 20091229
  Transmission Date: 20100710
  Serious: Yes (Life-Threatening, Hospitalization)
  Sender: FDA-Public Use
  Company Number: US-ABBOTT-09P-163-0606211-00

PATIENT
  Sex: Male
  Weight: 82 kg

DRUGS (16)
  1. HUMIRA [Suspect]
     Indication: RHEUMATOID ARTHRITIS
     Route: 058
     Dates: start: 20010314, end: 20091020
  2. COZAAR [Concomitant]
     Indication: HYPERTENSION
     Dates: start: 20030308
  3. XANAX [Concomitant]
     Indication: ANXIETY
     Dates: start: 20090204
  4. PRILOSEC [Concomitant]
     Indication: NAUSEA
     Dates: start: 20090204
  5. HYDROCODONE BITARTRATE [Concomitant]
     Indication: MUSCLE STRAIN
     Dosage: 5/500MG
     Dates: start: 20090625
  6. CYCLOBENZAPRINE [Concomitant]
     Indication: MUSCLE STRAIN
     Dates: start: 20090625, end: 20090701
  7. CYCLOBENZAPRINE [Concomitant]
     Dosage: 1-2 THREE TIMES/DAY
     Route: 048
     Dates: start: 20090625
  8. PREDNISONE [Concomitant]
     Indication: RHEUMATOID ARTHRITIS
     Dates: start: 19970620
  9. FOLIC ACID [Concomitant]
     Indication: RHEUMATOID ARTHRITIS
     Dates: start: 19960812
  10. ASPIRIN [Concomitant]
     Indication: RHEUMATOID ARTHRITIS
     Dates: start: 20040103, end: 20090922
  11. ASPIRIN [Concomitant]
     Route: 048
     Dates: start: 20090911
  12. TRAMADOL [Concomitant]
     Indication: RHEUMATOID ARTHRITIS
     Dates: start: 19970320
  13. MELOXICAM [Concomitant]
     Indication: RHEUMATOID ARTHRITIS
     Dates: start: 20090922
  14. METHOTREXATE [Concomitant]
     Indication: RHEUMATOID ARTHRITIS
     Dates: start: 20040310, end: 20080430
  15. METHOTREXATE [Concomitant]
     Dates: start: 20080922, end: 20080922
  16. METHOTREXATE [Concomitant]
     Dates: start: 20081117

REACTIONS (1)
  - NON-HODGKIN'S LYMPHOMA [None]
